FAERS Safety Report 14072825 (Version 1)
Quarter: 2017Q4

REPORT INFORMATION
  Report Type: Spontaneous
  Country: US (occurrence: US)
  Receive Date: 20171010
  Receipt Date: 20171010
  Transmission Date: 20180321
  Serious: No
  Sender: FDA-Public Use
  Company Number: US-JNJFOC-20170713096

PATIENT
  Sex: Female
  Weight: 68.04 kg

DRUGS (6)
  1. NAPROXEN. [Concomitant]
     Active Substance: NAPROXEN
     Indication: PAIN MANAGEMENT
     Route: 065
  2. ACETAMINOPHEN. [Suspect]
     Active Substance: ACETAMINOPHEN
     Route: 065
  3. MOTRIN [Suspect]
     Active Substance: IBUPROFEN
     Route: 065
  4. MOTRIN [Suspect]
     Active Substance: IBUPROFEN
     Indication: PAIN MANAGEMENT
     Dosage: COUPLE OF TIMES A DAY
     Route: 065
  5. ACETAMINOPHEN. [Suspect]
     Active Substance: ACETAMINOPHEN
     Indication: PAIN MANAGEMENT
     Route: 065
  6. LYRICA [Concomitant]
     Active Substance: PREGABALIN
     Indication: HERPES ZOSTER
     Route: 065
     Dates: start: 20170612

REACTIONS (1)
  - Drug effect incomplete [Unknown]
